FAERS Safety Report 5488066-1 (Version None)
Quarter: 2007Q4

REPORT INFORMATION
  Report Type: 
  Country: None (occurrence: None)
  Receive Date: 20071017
  Receipt Date: 20071011
  Transmission Date: 20080405
  Serious: Yes (Hospitalization)
  Sender: FDA-Public Use
  Company Number: FR-AVENTIS-200713262FR

PATIENT
  Age: 71 Year
  Sex: Male

DRUGS (10)
  1. RAMIPRIL [Suspect]
     Route: 048
     Dates: end: 20070908
  2. LASIX [Suspect]
     Route: 048
     Dates: end: 20070908
  3. ALDACTONE [Suspect]
     Route: 048
     Dates: end: 20070908
  4. DITROPAN [Concomitant]
     Route: 048
     Dates: end: 20070908
  5. ESCITALOPRAM [Concomitant]
     Route: 048
     Dates: end: 20070908
  6. OGAST [Concomitant]
     Route: 048
     Dates: end: 20070908
  7. PREVISCAN                          /00789001/ [Concomitant]
     Route: 048
     Dates: end: 20070908
  8. LYRICA [Concomitant]
     Route: 048
     Dates: end: 20070908
  9. HAVLANE [Concomitant]
     Route: 048
     Dates: end: 20070908
  10. NOVOMIX                            /01475801/ [Concomitant]
     Route: 058
     Dates: end: 20070908

REACTIONS (2)
  - DRUG INTERACTION [None]
  - RENAL FAILURE ACUTE [None]
